FAERS Safety Report 14270968 (Version 1)
Quarter: 2017Q4

REPORT INFORMATION
  Report Type: Spontaneous
  Country: CA (occurrence: CA)
  Receive Date: 20171211
  Receipt Date: 20171211
  Transmission Date: 20180321
  Serious: Yes (Other)
  Sender: FDA-Public Use
  Company Number: CA-OTSUKA-2015_003713

PATIENT

DRUGS (7)
  1. LORAZEPAM. [Concomitant]
     Active Substance: LORAZEPAM
     Indication: PRODUCT USED FOR UNKNOWN INDICATION
     Dosage: 1 MG, TID
     Route: 065
  2. EPIVAL                             /00017001/ [Concomitant]
     Active Substance: DIAZEPAM
     Indication: SEIZURE
     Dosage: 500 MG, TID
     Route: 065
  3. ARIPIPRAZOLE. [Suspect]
     Active Substance: ARIPIPRAZOLE
     Indication: BEHAVIOURAL THERAPY
  4. FOLIC ACID. [Concomitant]
     Active Substance: FOLIC ACID
     Indication: PRODUCT USED FOR UNKNOWN INDICATION
     Dosage: 1 MG, QD
     Route: 065
  5. SYNTHROID [Concomitant]
     Active Substance: LEVOTHYROXINE SODIUM
     Indication: PRODUCT USED FOR UNKNOWN INDICATION
     Dosage: 75 ?G, QD
     Route: 065
  6. ARIPIPRAZOLE. [Suspect]
     Active Substance: ARIPIPRAZOLE
     Indication: INTELLECTUAL DISABILITY
     Dosage: 2 MG, QD
     Route: 048
     Dates: start: 20150312, end: 20150422
  7. MYSOLINE [Concomitant]
     Active Substance: PRIMIDONE
     Indication: SEIZURE
     Dosage: 125 MG, QID
     Route: 065

REACTIONS (6)
  - Weight decreased [Not Recovered/Not Resolved]
  - Off label use [Unknown]
  - Dysphagia [Unknown]
  - Decreased appetite [Not Recovered/Not Resolved]
  - Gait disturbance [Recovering/Resolving]
  - Sedation complication [Unknown]

NARRATIVE: CASE EVENT DATE: 20150312
